FAERS Safety Report 11877217 (Version 1)
Quarter: 2015Q4

REPORT INFORMATION
  Report Type: Spontaneous
  Country: GB (occurrence: GB)
  Receive Date: 20151229
  Receipt Date: 20151229
  Transmission Date: 20160305
  Serious: Yes (Disabling, Other)
  Sender: FDA-Public Use
  Company Number: GB-BRISTOL-MYERS SQUIBB COMPANY-BMS-2015-090285

PATIENT
  Sex: Female

DRUGS (2)
  1. FUROSEMIDE. [Concomitant]
     Active Substance: FUROSEMIDE
     Indication: PRODUCT USED FOR UNKNOWN INDICATION
     Route: 065
  2. ELIQUIS [Suspect]
     Active Substance: APIXABAN
     Indication: EMBOLISM VENOUS
     Route: 048

REACTIONS (6)
  - Drug intolerance [Unknown]
  - Myalgia [Unknown]
  - Hyperaesthesia [Unknown]
  - Muscle spasms [Unknown]
  - Musculoskeletal discomfort [Unknown]
  - Sleep disorder [Unknown]
